FAERS Safety Report 6814502-1 (Version None)
Quarter: 2010Q3

REPORT INFORMATION
  Report Type: 
  Country: None (occurrence: None)
  Receive Date: 20100702
  Receipt Date: 20100621
  Transmission Date: 20110219
  Serious: Yes (Death, Hospitalization)
  Sender: FDA-Public Use
  Company Number: JP-JNJFOC-20100401905

PATIENT
  Sex: Female
  Weight: 50 kg

DRUGS (7)
  1. DOXORUBICIN HCL [Suspect]
     Indication: OVARIAN CANCER RECURRENT
     Route: 042
  2. NAUZELIN [Concomitant]
     Indication: PROPHYLAXIS
     Route: 048
  3. EMEND [Concomitant]
     Indication: PROPHYLAXIS
     Route: 048
  4. EMEND [Concomitant]
     Route: 048
  5. NEUTROGIN [Concomitant]
  6. BROACT [Concomitant]
     Route: 042
  7. POLYETHYLENE GLYCOL [Concomitant]
     Route: 042

REACTIONS (5)
  - FEBRILE NEUTROPENIA [None]
  - NEUTROPHIL COUNT DECREASED [None]
  - PLATELET COUNT DECREASED [None]
  - PYREXIA [None]
  - RENAL IMPAIRMENT [None]
